FAERS Safety Report 14871805 (Version 1)
Quarter: 2018Q2

REPORT INFORMATION
  Report Type: Spontaneous
  Country: FR (occurrence: FR)
  Receive Date: 20180509
  Receipt Date: 20180509
  Transmission Date: 20180711
  Serious: Yes (Death, Congenital Anomaly)
  Sender: FDA-Public Use
  Company Number: PHHY2018FR002404

PATIENT

DRUGS (1)
  1. GILENYA [Suspect]
     Active Substance: FINGOLIMOD HYDROCHLORIDE
     Indication: FOETAL EXPOSURE DURING PREGNANCY
     Dosage: MATERNAL DOSE: 0.5 MG, BID
     Route: 064

REACTIONS (4)
  - Aortic valve atresia [Fatal]
  - Mitral valve atresia [Fatal]
  - Foetal exposure timing unspecified [Unknown]
  - Ventricular hypoplasia [Fatal]

NARRATIVE: CASE EVENT DATE: 20171215
